FAERS Safety Report 21923074 (Version 1)
Quarter: 2023Q1

REPORT INFORMATION
  Report Type: Spontaneous
  Country: CA (occurrence: CA)
  Receive Date: 20230129
  Receipt Date: 20230129
  Transmission Date: 20230417
  Serious: Yes (Hospitalization, Other)
  Sender: FDA-Public Use
  Company Number: CA-BoehringerIngelheim-2023-BI-214697

PATIENT
  Age: 64 Year
  Sex: Male

DRUGS (4)
  1. TIOTROPIUM BROMIDE MONOHYDRATE [Suspect]
     Active Substance: TIOTROPIUM BROMIDE MONOHYDRATE
     Indication: Product used for unknown indication
     Dosage: 2 DOSAGE FORMS
     Route: 055
  2. VENTOLIN [Suspect]
     Active Substance: ALBUTEROL SULFATE
     Indication: Asthma
     Dosage: 2 DOSAGE FORMS
     Route: 055
  3. SYMBICORT [Suspect]
     Active Substance: BUDESONIDE\FORMOTEROL FUMARATE DIHYDRATE
     Indication: Product used for unknown indication
     Dosage: POWDER?2 DOSAGE FORMS
     Route: 055
  4. MEPOLIZUMAB [Suspect]
     Active Substance: MEPOLIZUMAB
     Indication: Asthma
     Route: 042

REACTIONS (17)
  - Abdominal pain [Unknown]
  - Asthma [Unknown]
  - Bone cancer [Unknown]
  - Bronchitis [Unknown]
  - Bronchospasm [Unknown]
  - Chest pain [Unknown]
  - Dyspnoea [Unknown]
  - Emphysema [Unknown]
  - Foreign body in respiratory tract [Unknown]
  - General physical health deterioration [Unknown]
  - Loss of personal independence in daily activities [Unknown]
  - Pneumonia [Unknown]
  - Renal disorder [Unknown]
  - Sleep disorder due to a general medical condition [Unknown]
  - Ureteral disorder [Unknown]
  - Urinary tract adhesions [Unknown]
  - Wheezing [Unknown]
